FAERS Safety Report 23194955 (Version 1)
Quarter: 2023Q4

REPORT INFORMATION
  Report Type: Report from Study
  Country: US (occurrence: US)
  Receive Date: 20231117
  Receipt Date: 20231117
  Transmission Date: 20240110
  Serious: Yes (Life-Threatening, Hospitalization)
  Sender: FDA-Public Use
  Company Number: US-BEIGENE AUS PTY LTD-BGN-2022-003438

PATIENT
  Age: 58 Year
  Sex: Male
  Weight: 60 kg

DRUGS (19)
  1. CARBOPLATIN [Suspect]
     Active Substance: CARBOPLATIN
     Indication: Non-small cell lung cancer metastatic
     Dosage: 640 MG
     Route: 042
     Dates: start: 20211201
  2. CARBOPLATIN [Suspect]
     Active Substance: CARBOPLATIN
     Dosage: 640 MG
     Route: 042
     Dates: start: 20211222
  3. PEMETREXED [Suspect]
     Active Substance: PEMETREXED
     Indication: Product used for unknown indication
     Dosage: 870 MG
     Route: 042
     Dates: start: 20211201
  4. PEMETREXED [Suspect]
     Active Substance: PEMETREXED
     Dosage: 870 MG
     Route: 042
     Dates: start: 20211222
  5. TISLELIZUMAB [Suspect]
     Active Substance: TISLELIZUMAB
     Indication: Non-small cell lung cancer metastatic
     Dosage: 200 MG
     Route: 042
     Dates: start: 20211201
  6. TISLELIZUMAB [Suspect]
     Active Substance: TISLELIZUMAB
     Dosage: 200 MG
     Route: 042
     Dates: start: 20211222
  7. ALBUTEROL SULFATE [Concomitant]
     Active Substance: ALBUTEROL SULFATE
     Indication: Dyspnoea
     Dosage: UNK
     Route: 055
     Dates: start: 20211216
  8. AUGMENTIN [Concomitant]
     Active Substance: AMOXICILLIN\CLAVULANATE POTASSIUM
     Indication: Pneumonia
     Dosage: UNK
     Route: 065
     Dates: start: 20210103, end: 20220108
  9. ERYTHROPOIETIN [Concomitant]
     Active Substance: ERYTHROPOIETIN
     Indication: Supportive care
     Dosage: UNK
     Route: 065
     Dates: start: 20211222, end: 20211222
  10. FOLIC ACID [Concomitant]
     Active Substance: FOLIC ACID
     Indication: Supportive care
     Dosage: UNK
     Route: 065
     Dates: start: 20211110
  11. HYDROCORTISONE [Concomitant]
     Active Substance: HYDROCORTISONE
     Indication: Eczema
     Dosage: EXTERNAL USE
     Route: 065
     Dates: start: 20211201
  12. LISINOPRIL [Concomitant]
     Active Substance: LISINOPRIL
     Indication: Hypertension
     Dosage: 20 UG
     Route: 065
     Dates: start: 20210929
  13. NAPROXEN [Concomitant]
     Active Substance: NAPROXEN
     Indication: Chest discomfort
     Dosage: UNK
     Route: 065
     Dates: start: 20210929
  14. IRON\VITAMINS [Concomitant]
     Active Substance: IRON\VITAMINS
     Indication: Supplementation therapy
     Dosage: UNK
     Route: 065
     Dates: start: 202201
  15. TESSALON [Concomitant]
     Active Substance: BENZONATATE
     Indication: Cough
     Dosage: UNK
     Route: 065
     Dates: start: 20211216
  16. TOLVAPTAN [Concomitant]
     Active Substance: TOLVAPTAN
     Indication: Inappropriate antidiuretic hormone secretion
     Dosage: UNK
     Route: 065
     Dates: start: 20211222, end: 20211222
  17. TRAMADOL [Concomitant]
     Active Substance: TRAMADOL\TRAMADOL HYDROCHLORIDE
     Indication: Chest discomfort
     Dosage: UNK
     Route: 065
     Dates: start: 202111
  18. TRIAMCINOLONE ACETONIDE [Concomitant]
     Active Substance: TRIAMCINOLONE ACETONIDE
     Indication: Eczema
     Dosage: EXTERNAL USE
     Route: 065
     Dates: start: 20211208
  19. VENTOLIN HFA [Concomitant]
     Active Substance: ALBUTEROL SULFATE
     Indication: Dyspnoea
     Dosage: UNK
     Route: 055
     Dates: start: 20210930

REACTIONS (1)
  - Atrial fibrillation [Recovered/Resolved]

NARRATIVE: CASE EVENT DATE: 20220107
